FAERS Safety Report 9404771 (Version 1)
Quarter: 2013Q3

REPORT INFORMATION
  Report Type: Spontaneous
  Country: DE (occurrence: DE)
  Receive Date: 20130717
  Receipt Date: 20130717
  Transmission Date: 20140515
  Serious: Yes (Other)
  Sender: FDA-Public Use
  Company Number: DE-PFIZER INC-2013204517

PATIENT
  Age: 77 Year
  Sex: Male

DRUGS (1)
  1. REVATIO [Suspect]
     Dosage: UNK

REACTIONS (2)
  - Stomatitis necrotising [Unknown]
  - Mouth haemorrhage [Unknown]
